FAERS Safety Report 7729127-3 (Version None)
Quarter: 2011Q3

REPORT INFORMATION
  Report Type: 
  Country: None (occurrence: None)
  Receive Date: 20110831
  Receipt Date: 20110831
  Transmission Date: 20111222
  Serious: Yes (Disabling)
  Sender: FDA-Public Use
  Company Number: None

PATIENT
  Age: 84 Year
  Sex: Female
  Weight: 65.7716 kg

DRUGS (2)
  1. METRONIDAZOLE [Suspect]
     Indication: LUNG INFECTION
     Dosage: 1 TAB 3 TIMES DAILY ORAL
     Route: 048
     Dates: start: 20110721, end: 20110725
  2. CIPROFLOXACIN [Suspect]
     Indication: LUNG INFECTION
     Dosage: 1 TAB EVERY 12 HRS ORAL
     Route: 048
     Dates: start: 20110721, end: 20110725

REACTIONS (12)
  - PRURITUS [None]
  - DEPRESSION [None]
  - MUSCULAR WEAKNESS [None]
  - NAUSEA [None]
  - MOVEMENT DISORDER [None]
  - WEIGHT BEARING DIFFICULTY [None]
  - TENDON PAIN [None]
  - BLISTER [None]
  - VULVOVAGINAL PRURITUS [None]
  - DIZZINESS [None]
  - DYSGEUSIA [None]
  - DIARRHOEA [None]
